FAERS Safety Report 21636096 (Version 2)
Quarter: 2022Q4

REPORT INFORMATION
  Report Type: Spontaneous
  Country: US (occurrence: US)
  Receive Date: 20221123
  Receipt Date: 20221128
  Transmission Date: 20230113
  Serious: No
  Sender: FDA-Public Use
  Company Number: US-002147023-NVSC2022US263912

PATIENT
  Sex: Female

DRUGS (2)
  1. RECLAST [Suspect]
     Active Substance: ZOLEDRONIC ACID
     Indication: Osteoporosis
     Dosage: UNK (3RD DOSE)
     Route: 065
     Dates: start: 202210
  2. HYALURONIC ACID [Concomitant]
     Active Substance: HYALURONIC ACID
     Indication: Product used for unknown indication
     Dosage: UNK (USED TO HER LOWER LIDS)
     Route: 065
     Dates: start: 20190329

REACTIONS (3)
  - Eye disorder [Unknown]
  - Asthenia [Unknown]
  - Arthralgia [Unknown]
